FAERS Safety Report 10202498 (Version 1)
Quarter: 2014Q2

REPORT INFORMATION
  Report Type: Report from Study
  Country: GB (occurrence: GB)
  Receive Date: 20140528
  Receipt Date: 20140528
  Transmission Date: 20141212
  Serious: Yes (Other)
  Sender: FDA-Public Use
  Company Number: GB-ABBVIE-14P-167-1239890-00

PATIENT
  Age: 21 Year
  Sex: Female

DRUGS (2)
  1. HUMIRA [Suspect]
     Indication: PRODUCT USED FOR UNKNOWN INDICATION
     Dates: start: 201401
  2. HUMIRA [Suspect]

REACTIONS (5)
  - Amnesia [Recovered/Resolved]
  - Memory impairment [Recovered/Resolved]
  - Amnesia [Recovered/Resolved]
  - Night sweats [Unknown]
  - Lower respiratory tract infection [Recovered/Resolved]
